FAERS Safety Report 7842059-5 (Version None)
Quarter: 2011Q4

REPORT INFORMATION
  Report Type: 
  Country: None (occurrence: None)
  Receive Date: 20111019
  Receipt Date: 20111012
  Transmission Date: 20120403
  Serious: Yes (Other)
  Sender: FDA-Public Use
  Company Number: 2011SP048399

PATIENT
  Age: 47 Year
  Sex: Female
  Weight: 69.4003 kg

DRUGS (4)
  1. ZOLOFT [Concomitant]
  2. SEROQUEL [Concomitant]
  3. REMERON [Suspect]
     Indication: PRODUCT USED FOR UNKNOWN INDICATION
     Dosage: 30 MG;QD;PO ; 45 MG;QD;PO
     Route: 048
  4. SYNTHROID [Concomitant]

REACTIONS (7)
  - AGGRESSION [None]
  - WEIGHT INCREASED [None]
  - DECREASED ACTIVITY [None]
  - INTENTIONAL SELF-INJURY [None]
  - AGITATION [None]
  - DISTURBANCE IN ATTENTION [None]
  - DRUG INEFFECTIVE [None]
